FAERS Safety Report 6825582-1 (Version None)
Quarter: 2010Q3

REPORT INFORMATION
  Report Type: 
  Country: None (occurrence: None)
  Receive Date: 20100708
  Receipt Date: 20070730
  Transmission Date: 20110219
  Serious: No
  Sender: FDA-Public Use
  Company Number: US-PFIZER INC-2006140255

PATIENT
  Sex: Female
  Weight: 51.71 kg

DRUGS (10)
  1. CHANTIX [Suspect]
     Indication: SMOKING CESSATION THERAPY
     Route: 048
     Dates: start: 20061101
  2. CHANTIX [Suspect]
     Indication: EX-TOBACCO USER
  3. LITHIUM CARBONATE [Concomitant]
     Route: 048
  4. LEXAPRO [Concomitant]
     Route: 048
  5. NEXIUM [Concomitant]
     Route: 048
  6. ZYRTEC [Concomitant]
     Route: 048
  7. PREMARIN [Concomitant]
     Route: 048
  8. VICODIN [Concomitant]
     Indication: PAIN
     Route: 048
  9. RISPERDAL [Concomitant]
     Indication: SLEEP DISORDER
     Route: 048
  10. TYLENOL [Concomitant]

REACTIONS (3)
  - INCORRECT DOSE ADMINISTERED [None]
  - NAUSEA [None]
  - VOMITING [None]
